FAERS Safety Report 24330439 (Version 1)
Quarter: 2024Q3

REPORT INFORMATION
  Report Type: Spontaneous
  Country: CN (occurrence: CN)
  Receive Date: 20240918
  Receipt Date: 20240918
  Transmission Date: 20241017
  Serious: Yes (Death)
  Sender: STRIDES
  Company Number: CN-STRIDES ARCOLAB LIMITED-2024SP011732

PATIENT
  Age: 8 Decade
  Sex: Male

DRUGS (7)
  1. ETOPOSIDE [Suspect]
     Active Substance: ETOPOSIDE
     Indication: Hepatic neuroendocrine tumour
     Dosage: 360 MILLIGRAM, CYCLICAL (THREE CYCLES), EP REGIMEN
     Route: 065
     Dates: start: 2023
  2. CARBOPLATIN [Suspect]
     Active Substance: CARBOPLATIN
     Indication: Hepatic neuroendocrine tumour
     Dosage: 200 MILLIGRAM, CYCLICAL (THREE CYCLE), EP REGIMEN
     Route: 065
     Dates: start: 2023
  3. BICALUTAMIDE [Concomitant]
     Active Substance: BICALUTAMIDE
     Indication: Neuroendocrine carcinoma of prostate
     Dosage: 50 MILLIGRAM, QD
     Route: 065
  4. GOSERELIN ACETATE [Concomitant]
     Active Substance: GOSERELIN ACETATE
     Indication: Neuroendocrine carcinoma of prostate
     Dosage: 3.6 MILLIGRAM
     Route: 065
  5. DOCETAXEL [Concomitant]
     Active Substance: DOCETAXEL\DOCETAXEL ANHYDROUS
     Indication: Neuroendocrine carcinoma of prostate
     Dosage: 100 MILLIGRAM
     Route: 065
  6. PREDNISONE [Concomitant]
     Active Substance: PREDNISONE
     Indication: Neuroendocrine carcinoma of prostate
     Dosage: 5 MILLIGRAM, BID, CHEMOTHERAPY EVERY 21 DAYS
     Route: 065
  7. ZOLEDRONIC ACID [Concomitant]
     Active Substance: ZOLEDRONIC ACID
     Indication: Neuroendocrine carcinoma of prostate
     Dosage: UNK
     Route: 065

REACTIONS (2)
  - Therapy partial responder [Fatal]
  - Metastases to liver [Fatal]

NARRATIVE: CASE EVENT DATE: 20230911
